FAERS Safety Report 18230331 (Version 2)
Quarter: 2020Q3

REPORT INFORMATION
  Report Type: Spontaneous
  Country: FR (occurrence: FR)
  Receive Date: 20200904
  Receipt Date: 20200919
  Transmission Date: 20201103
  Serious: Yes (Hospitalization, Other)
  Sender: FDA-Public Use
  Company Number: FR-AUROBINDO-AUR-APL-2020-046181

PATIENT
  Age: 58 Year
  Sex: Male
  Weight: 74 kg

DRUGS (13)
  1. SOLU?MEDROL [Suspect]
     Active Substance: METHYLPREDNISOLONE SODIUM SUCCINATE
     Indication: CHEMOTHERAPY SIDE EFFECT PROPHYLAXIS
     Dosage: 1 DOSAGE FORM
     Route: 042
     Dates: start: 20200723, end: 20200723
  2. LEUCOVORINE CALCIUM [Concomitant]
     Active Substance: LEUCOVORIN CALCIUM
     Indication: ADENOCARCINOMA GASTRIC
     Dosage: 348 MILLIGRAM, ONCE A DAY
     Route: 041
     Dates: start: 20200723, end: 20200723
  3. NATISPRAY [Concomitant]
     Active Substance: NITROGLYCERIN
     Indication: ACUTE CORONARY SYNDROME
     Dosage: 2 DOSAGE FORM, AS NECESSARY
     Route: 002
     Dates: end: 20200803
  4. SERETIDE [Concomitant]
     Active Substance: FLUTICASONE PROPIONATE\SALMETEROL XINAFOATE
     Indication: CHRONIC OBSTRUCTIVE PULMONARY DISEASE
     Dosage: 1 DOSAGE FORM, ONCE A DAY
     Route: 055
     Dates: end: 20200803
  5. OXALIPLATIN. [Suspect]
     Active Substance: OXALIPLATIN
     Indication: ADENOCARCINOMA GASTRIC
     Dosage: 148 MILLIGRAM, ONCE A DAY
     Route: 041
     Dates: start: 20200723, end: 20200723
  6. KARDEGIC [Concomitant]
     Active Substance: ASPIRIN DL-LYSINE
     Indication: PRODUCT USED FOR UNKNOWN INDICATION
     Dosage: 1 DOSAGE FORM, ONCE A DAY
     Route: 048
  7. EUPANTOL [Concomitant]
     Active Substance: PANTOPRAZOLE SODIUM
     Indication: PRODUCT USED FOR UNKNOWN INDICATION
     Dosage: 2 DOSAGE FORM, ONCE A DAY
     Route: 048
     Dates: start: 20200723, end: 20200803
  8. CARVEDILOL. [Concomitant]
     Active Substance: CARVEDILOL
     Indication: VARICES OESOPHAGEAL
     Dosage: 25 MILLIGRAM, ONCE A DAY
     Route: 048
  9. STAGID [Concomitant]
     Active Substance: METFORMIN PAMOATE
     Indication: TYPE 2 DIABETES MELLITUS
     Dosage: 2 DOSAGE FORM, ONCE A DAY
     Route: 048
  10. VICTOZA [Concomitant]
     Active Substance: LIRAGLUTIDE
     Indication: TYPE 2 DIABETES MELLITUS
     Dosage: 1.2 MILLIGRAM, ONCE A DAY
     Route: 030
  11. ATORVASTATIN [Concomitant]
     Active Substance: ATORVASTATIN
     Indication: CARDIOVASCULAR EVENT PROPHYLAXIS
     Dosage: 80 MILLIGRAM, ONCE A DAY
     Route: 048
     Dates: end: 20200803
  12. DOCETAXEL. [Suspect]
     Active Substance: DOCETAXEL
     Indication: ADENOCARCINOMA GASTRIC
     Dosage: 87 MILLIGRAM, ONCE A DAY
     Route: 041
     Dates: start: 20200723, end: 20200723
  13. FLUOROURACILE [Suspect]
     Active Substance: FLUOROURACIL
     Indication: ADENOCARCINOMA GASTRIC
     Dosage: 4.5 GRAM, ONCE A DAY
     Route: 041
     Dates: start: 20200723, end: 20200723

REACTIONS (3)
  - Septic shock [Recovered/Resolved]
  - Acute kidney injury [Recovered/Resolved]
  - Colitis [Recovered/Resolved]

NARRATIVE: CASE EVENT DATE: 20200802
